FAERS Safety Report 7038181-6 (Version None)
Quarter: 2010Q4

REPORT INFORMATION
  Report Type: 
  Country: None (occurrence: None)
  Receive Date: 20101011
  Receipt Date: 20100930
  Transmission Date: 20110411
  Serious: Yes (Hospitalization)
  Sender: FDA-Public Use
  Company Number: JP-GENENTECH-303984

PATIENT
  Age: 4 Year
  Sex: Male

DRUGS (4)
  1. RITUXIMAB [Suspect]
     Indication: NEPHROTIC SYNDROME
     Dosage: 300 MG, UNK
     Route: 042
     Dates: start: 20100316
  2. CYCLOSPORINE [Concomitant]
     Indication: PROPHYLAXIS
     Dosage: 70 MG, QD
     Route: 048
     Dates: start: 20080119
  3. LONGES [Concomitant]
     Indication: NEPHROTIC SYNDROME
     Dosage: 5 MG, QD
     Route: 048
     Dates: start: 20080129
  4. PREDNISOLONE [Concomitant]
     Indication: NEPHROTIC SYNDROME
     Dosage: 7.5 MG, QOD
     Route: 048
     Dates: start: 20100220

REACTIONS (1)
  - AGRANULOCYTOSIS [None]
